FAERS Safety Report 6495378-1 (Version None)
Quarter: 2009Q4

REPORT INFORMATION
  Report Type: 
  Country: None (occurrence: None)
  Receive Date: 20091214
  Receipt Date: 20090609
  Transmission Date: 20100525
  Serious: No
  Sender: FDA-Public Use
  Company Number: US-BRISTOL-MYERS SQUIBB COMPANY-14662266

PATIENT
  Age: 22 Year
  Sex: Female

DRUGS (3)
  1. ABILIFY [Suspect]
     Indication: DEPRESSION
     Route: 048
     Dates: start: 20090301, end: 20090601
  2. TOPIRAMATE [Suspect]
     Indication: MIGRAINE
     Dosage: TABLETS
     Route: 048
     Dates: start: 20090301, end: 20090501
  3. ESCITALOPRAM [Concomitant]
     Indication: DEPRESSION
     Route: 048

REACTIONS (17)
  - CHILLS [None]
  - CONSTIPATION [None]
  - DIZZINESS [None]
  - DYSPHAGIA [None]
  - DYSPNOEA [None]
  - DYSURIA [None]
  - HEADACHE [None]
  - INSOMNIA [None]
  - MEMORY IMPAIRMENT [None]
  - MENTAL IMPAIRMENT [None]
  - SALIVARY HYPERSECRETION [None]
  - SKIN DISCOLOURATION [None]
  - SPEECH DISORDER [None]
  - SWOLLEN TONGUE [None]
  - THIRST [None]
  - TONGUE SPASM [None]
  - TRISMUS [None]
